FAERS Safety Report 15555648 (Version 1)
Quarter: 2018Q4

REPORT INFORMATION
  Report Type: Spontaneous
  Country: US (occurrence: US)
  Receive Date: 20181026
  Receipt Date: 20181026
  Transmission Date: 20190205
  Serious: No
  Sender: FDA-Public Use
  Company Number: US-IPSEN BIOPHARMACEUTICALS, INC.-2018-15889

PATIENT
  Sex: Female

DRUGS (1)
  1. XERMELO [Suspect]
     Active Substance: TELOTRISTAT ETHYL
     Indication: NEUROENDOCRINE TUMOUR
     Route: 048
     Dates: start: 20180829

REACTIONS (3)
  - Decreased appetite [Unknown]
  - Sleep disorder [Unknown]
  - Nausea [Unknown]
